FAERS Safety Report 10695518 (Version 1)
Quarter: 2014Q4

REPORT INFORMATION
  Report Type: Spontaneous
  Country: US (occurrence: None)
  Receive Date: 20141224
  Receipt Date: 20141224
  Transmission Date: 20150529
  Serious: Yes (Other)
  Sender: FDA-Public Use
  Company Number: 1000067756

PATIENT
  Age: 12 Year
  Sex: Female

DRUGS (23)
  1. INSULIN LISPRO [Concomitant]
     Active Substance: INSULIN LISPRO
  2. SODIUM CHLORIDE NEBULIZER [Concomitant]
  3. TEFLARO [Suspect]
     Active Substance: CEFTAROLINE FOSAMIL
     Indication: PNEUMONIA STAPHYLOCOCCAL
     Dosage: 12 MG PER KILO EVERY 8 HOURS, INTRAVENOUS (NOT OTHERWISE SPECIFIED)?
     Route: 042
     Dates: start: 20140409, end: 20140411
  4. AMIKACIN [Concomitant]
     Active Substance: AMIKACIN
  5. FLONASE [Concomitant]
     Active Substance: FLUTICASONE PROPIONATE
  6. CLARITHROMYCIN. [Concomitant]
     Active Substance: CLARITHROMYCIN
  7. CERIC SULFATE [Concomitant]
  8. LACTOBACILLUS (LACTOBACILLUS ACIDOPHILUS) [Concomitant]
  9. TEFLARO [Suspect]
     Active Substance: CEFTAROLINE FOSAMIL
     Indication: CYSTIC FIBROSIS
     Dosage: 15MG PER KILO EVERY 8 HOURS, INTRAVENOUS (NOT OTHERWISE SPECIFIED)?
     Route: 042
     Dates: start: 20140305, end: 20140307
  10. ERGOCALCIFEROL. [Concomitant]
     Active Substance: ERGOCALCIFEROL
  11. MULTIVITAMIN NOS [Concomitant]
  12. TEFLARO [Suspect]
     Active Substance: CEFTAROLINE FOSAMIL
     Indication: PNEUMONIA STAPHYLOCOCCAL
     Dosage: 15MG PER KILO EVERY 8 HOURS, INTRAVENOUS (NOT OTHERWISE SPECIFIED)?
     Route: 042
     Dates: start: 20140305, end: 20140307
  13. TEFLARO [Suspect]
     Active Substance: CEFTAROLINE FOSAMIL
     Indication: CYSTIC FIBROSIS
     Dosage: 12 MG PER KILO EVERY 8 HOURS, INTRAVENOUS (NOT OTHERWISE SPECIFIED)?
     Route: 042
     Dates: start: 20140409, end: 20140411
  14. TEFLARO [Suspect]
     Active Substance: CEFTAROLINE FOSAMIL
     Indication: CONDITION AGGRAVATED
     Dosage: 12 MG PER KILO EVERY 8 HOURS, INTRAVENOUS (NOT OTHERWISE SPECIFIED)?
     Route: 042
     Dates: start: 20140409, end: 20140411
  15. ALBUTEROL. [Concomitant]
     Active Substance: ALBUTEROL
  16. URSODIOL (URSODEOXYCHOLIC ACID) [Concomitant]
  17. TEFLARO [Suspect]
     Active Substance: CEFTAROLINE FOSAMIL
     Indication: CONDITION AGGRAVATED
     Dosage: 15MG PER KILO EVERY 8 HOURS, INTRAVENOUS (NOT OTHERWISE SPECIFIED)?
     Route: 042
     Dates: start: 20140305, end: 20140307
  18. CETIRIZINE [Concomitant]
     Active Substance: CETIRIZINE HYDROCHLORIDE
  19. OMEPRAZOLE. [Concomitant]
     Active Substance: OMEPRAZOLE
  20. CREON [Concomitant]
     Active Substance: PANCRELIPASE AMYLASE\PANCRELIPASE LIPASE\PANCRELIPASE PROTEASE
  21. CALCIUM CARBONATE. [Concomitant]
     Active Substance: CALCIUM CARBONATE
  22. DORNASE ALFA [Concomitant]
     Active Substance: DORNASE ALFA
  23. POTASSIUM CITRATE. [Concomitant]
     Active Substance: POTASSIUM CITRATE

REACTIONS (3)
  - Anaemia [None]
  - Off label use [None]
  - Neutropenia [None]

NARRATIVE: CASE EVENT DATE: 20140305
